FAERS Safety Report 7569175-X (Version None)
Quarter: 2011Q2

REPORT INFORMATION
  Report Type: 
  Country: None (occurrence: None)
  Receive Date: 20110623
  Receipt Date: 20110609
  Transmission Date: 20111010
  Serious: Yes (Other)
  Sender: FDA-Public Use
  Company Number: PHHY2011BR51125

PATIENT
  Sex: Female
  Weight: 67 kg

DRUGS (3)
  1. FORMOTEROL FUMARATE [Suspect]
     Indication: ASTHMA
     Dosage: 1 DF, BID
     Dates: start: 20110530
  2. FORMOTEROL FUMARATE [Suspect]
     Dosage: 1 DF, BID
     Dates: start: 20110608
  3. SYNTHROID [Concomitant]
     Indication: HYPOTHYROIDISM
     Dosage: 1 DF, QD (1 TABLET DAILY)
     Route: 048

REACTIONS (5)
  - COUGH [None]
  - NASOPHARYNGITIS [None]
  - CHOKING [None]
  - HAEMOPTYSIS [None]
  - DRUG EXPOSURE DURING PREGNANCY [None]
